FAERS Safety Report 25049531 (Version 1)
Quarter: 2025Q1

REPORT INFORMATION
  Report Type: Spontaneous
  Country: NL (occurrence: NL)
  Receive Date: 20250307
  Receipt Date: 20250307
  Transmission Date: 20250409
  Serious: Yes (Other)
  Sender: TEVA
  Company Number: None

PATIENT
  Age: 38 Year
  Sex: Female

DRUGS (1)
  1. CLOZAPINE [Suspect]
     Active Substance: CLOZAPINE
     Indication: Major depression
     Dosage: BRAND NAME NOT SPECIFIED 2 PIECES ONCE A DAY, IN A BUILD-UP SCHEDULE
     Route: 048
     Dates: start: 20250116, end: 20250205

REACTIONS (1)
  - Myocarditis [Recovering/Resolving]
